FAERS Safety Report 4747625-1 (Version None)
Quarter: 2005Q3

REPORT INFORMATION
  Report Type: 
  Country: None (occurrence: None)
  Receive Date: 20050818
  Receipt Date: 20050204
  Transmission Date: 20060218
  Serious: Yes (Hospitalization)
  Sender: FDA-Public Use
  Company Number: US-BRISTOL-MYERS SQUIBB COMPANY-12850392

PATIENT
  Sex: Male

DRUGS (1)
  1. TEQUIN [Suspect]
     Route: 048

REACTIONS (2)
  - HEADACHE [None]
  - NECK PAIN [None]
